FAERS Safety Report 7208408-6 (Version None)
Quarter: 2011Q1

REPORT INFORMATION
  Report Type: 
  Country: None (occurrence: None)
  Receive Date: 20110104
  Receipt Date: 20101222
  Transmission Date: 20110831
  Serious: Yes (Death, Hospitalization, Other)
  Sender: FDA-Public Use
  Company Number: CA-ELI_LILLY_AND_COMPANY-CA201011002626

PATIENT
  Sex: Male
  Weight: 73.5 kg

DRUGS (2)
  1. XIGRIS [Suspect]
     Indication: SEPSIS
     Dosage: 5 MG, UNKNOWN
     Route: 042
     Dates: start: 20101108, end: 20101109
  2. FENTANYL [Concomitant]
     Route: 042
     Dates: start: 20101109

REACTIONS (5)
  - LOSS OF CONSCIOUSNESS [None]
  - GENERAL PHYSICAL HEALTH DETERIORATION [None]
  - MULTI-ORGAN FAILURE [None]
  - SEPSIS [None]
  - ANURIA [None]
